FAERS Safety Report 16597385 (Version 4)
Quarter: 2019Q4

REPORT INFORMATION
  Report Type: Spontaneous
  Country: US (occurrence: US)
  Receive Date: 20190719
  Receipt Date: 20191018
  Transmission Date: 20200122
  Serious: No
  Sender: FDA-Public Use
  Company Number: US-PFIZER INC-2019302294

PATIENT
  Age: 73 Year
  Sex: Female

DRUGS (1)
  1. XELJANZ XR [Suspect]
     Active Substance: TOFACITINIB CITRATE
     Dosage: 11 MG, UNK
     Dates: start: 20190624

REACTIONS (8)
  - Decreased appetite [Unknown]
  - Fatigue [Unknown]
  - Dry mouth [Unknown]
  - Arthropathy [Unknown]
  - Balance disorder [Unknown]
  - Chills [Unknown]
  - Memory impairment [Unknown]
  - Hot flush [Unknown]
